FAERS Safety Report 6095474-7 (Version None)
Quarter: 2009Q1

REPORT INFORMATION
  Report Type: 
  Country: None (occurrence: None)
  Receive Date: 20090227
  Receipt Date: 20080508
  Transmission Date: 20090719
  Serious: Yes (Other)
  Sender: FDA-Public Use
  Company Number: A0721891A

PATIENT
  Age: 63 Year
  Sex: Female
  Weight: 65.9 kg

DRUGS (2)
  1. LAMICTAL [Suspect]
     Indication: DRUG USE FOR UNKNOWN INDICATION
     Route: 048
     Dates: end: 20080408
  2. ABILIFY [Concomitant]

REACTIONS (2)
  - ANGIOEDEMA [None]
  - LIP SWELLING [None]
